FAERS Safety Report 22017293 (Version 1)
Quarter: 2023Q1

REPORT INFORMATION
  Report Type: Spontaneous
  Country: US (occurrence: US)
  Receive Date: 20230221
  Receipt Date: 20230221
  Transmission Date: 20230417
  Serious: No
  Sender: FDA-Public Use
  Company Number: US-BAYER-2023P009999

PATIENT
  Age: 43 Year
  Sex: Female
  Weight: 95.6 kg

DRUGS (3)
  1. GADAVIST [Suspect]
     Active Substance: GADOBUTROL
     Indication: Magnetic resonance imaging head
     Dosage: 9.5 ML, ONCE
     Route: 042
     Dates: start: 20230208, end: 20230208
  2. GADAVIST [Suspect]
     Active Substance: GADOBUTROL
     Indication: Headache
  3. GADAVIST [Suspect]
     Active Substance: GADOBUTROL
     Indication: Idiopathic intracranial hypertension

REACTIONS (4)
  - Throat irritation [Recovered/Resolved]
  - Urticaria [Recovered/Resolved]
  - Pruritus [Recovered/Resolved]
  - Contrast media allergy [Recovered/Resolved]

NARRATIVE: CASE EVENT DATE: 20230208
